FAERS Safety Report 4894915-8 (Version None)
Quarter: 2006Q1

REPORT INFORMATION
  Report Type: 
  Country: None (occurrence: None)
  Receive Date: 20060130
  Receipt Date: 20050303
  Transmission Date: 20060701
  Serious: No
  Sender: FDA-Public Use
  Company Number: US-BRISTOL-MYERS SQUIBB COMPANY-12885281

PATIENT
  Age: 78 Year
  Sex: Male
  Weight: 69 kg

DRUGS (3)
  1. GLUCOPHAGE [Suspect]
     Indication: DIABETES MELLITUS
  2. MEVACOR [Concomitant]
  3. CLONIDINE [Concomitant]

REACTIONS (1)
  - NAIL DISCOLOURATION [None]
